FAERS Safety Report 5530607-X (Version None)
Quarter: 2007Q4

REPORT INFORMATION
  Report Type: 
  Country: None (occurrence: None)
  Receive Date: 20071130
  Receipt Date: 20071126
  Transmission Date: 20080405
  Serious: Yes (Other)
  Sender: FDA-Public Use
  Company Number: B0496070A

PATIENT
  Age: 64 Year
  Sex: Female

DRUGS (4)
  1. ACETAMINOPHEN [Suspect]
     Indication: ARTHRITIS
     Route: 048
     Dates: start: 20060101, end: 20071101
  2. VITAMINS [Concomitant]
  3. PEPCIDINE [Concomitant]
  4. HERBAL MEDICATION [Concomitant]
     Route: 065

REACTIONS (2)
  - HEPATIC ENZYME INCREASED [None]
  - LIVER FUNCTION TEST ABNORMAL [None]
